FAERS Safety Report 6235690-4 (Version None)
Quarter: 2009Q2

REPORT INFORMATION
  Report Type: 
  Country: None (occurrence: None)
  Receive Date: 20090618
  Receipt Date: 20090611
  Transmission Date: 20091009
  Serious: Yes (Hospitalization, Other)
  Sender: FDA-Public Use
  Company Number: US-ELI_LILLY_AND_COMPANY-US200906003980

PATIENT
  Sex: Male

DRUGS (5)
  1. HUMULIN R [Suspect]
     Dosage: 14 U, UNK
  2. HUMULIN R [Suspect]
     Dosage: 10 U, UNK
  3. HUMULIN N [Suspect]
  4. LANTUS [Concomitant]
     Dosage: 30 U, UNK
  5. LANTUS [Concomitant]
     Dosage: 22 U, UNK

REACTIONS (18)
  - ASTHENIA [None]
  - BLINDNESS [None]
  - BLOOD GLUCOSE DECREASED [None]
  - BLOOD GLUCOSE INCREASED [None]
  - BLOOD PRESSURE DECREASED [None]
  - CHEST PAIN [None]
  - CHRONIC OBSTRUCTIVE PULMONARY DISEASE [None]
  - COLD SWEAT [None]
  - DEPRESSED LEVEL OF CONSCIOUSNESS [None]
  - DYSPNOEA [None]
  - FEELING JITTERY [None]
  - HYPERHIDROSIS [None]
  - HYPOGLYCAEMIC UNCONSCIOUSNESS [None]
  - PNEUMONIA [None]
  - QRS AXIS ABNORMAL [None]
  - RHONCHI [None]
  - RIGHT ATRIAL DILATATION [None]
  - SINUS TACHYCARDIA [None]
